FAERS Safety Report 26020198 (Version 1)
Quarter: 2025Q4

REPORT INFORMATION
  Report Type: Spontaneous
  Country: US (occurrence: US)
  Receive Date: 20251110
  Receipt Date: 20251110
  Transmission Date: 20260118
  Serious: No
  Sender: TENSHI KAIZEN PRIVATE LIMITED
  Company Number: US-TENSHI KAIZEN PRIVATE LIMITED-2025TK000057

PATIENT
  Age: 85 Year
  Sex: Female
  Weight: 83.9 kg

DRUGS (1)
  1. LORATADINE [Suspect]
     Active Substance: LORATADINE
     Indication: Product used for unknown indication
     Dosage: 1 TABLET ONCE A DAY
     Route: 048
     Dates: start: 20250407, end: 20250408

REACTIONS (2)
  - Faeces discoloured [Unknown]
  - Diarrhoea [Unknown]

NARRATIVE: CASE EVENT DATE: 20250408
